FAERS Safety Report 8964935 (Version 2)
Quarter: 2013Q1

REPORT INFORMATION
  Report Type: Other
  Country: GB (occurrence: GB)
  Receive Date: 20121213
  Receipt Date: 20130329
  Transmission Date: 20140127
  Serious: Yes (Hospitalization)
  Sender: FDA-Public Use
  Company Number: GB-WATSON-2012-21801

PATIENT
  Age: 50 Year
  Sex: Male

DRUGS (5)
  1. CIPROFLOXACIN HYDROCHLORIDE (UNKNOWN) [Suspect]
     Indication: ABDOMINAL PAIN
     Dosage: 500 MG, BID
     Route: 048
     Dates: start: 20121103, end: 20121110
  2. HYPROMELLOSE [Concomitant]
     Indication: SJOGREN^S SYNDROME
     Dosage: 1 DF, UNKNOWN. LONG TERM USE
     Route: 047
  3. GLANDOSANE [Concomitant]
     Indication: PRODUCT USED FOR UNKNOWN INDICATION
     Dosage: UNK, UNKNOWN. LONG TERM USE
     Route: 065
  4. BETAHISTINE [Concomitant]
     Indication: PRODUCT USED FOR UNKNOWN INDICATION
     Dosage: UNK, UNKNOWN
     Route: 065
  5. SERETIDE [Concomitant]
     Indication: PRODUCT USED FOR UNKNOWN INDICATION
     Dosage: UNK, UNKNOWN. LONG TERM USE
     Route: 065

REACTIONS (3)
  - Syncope [Recovered/Resolved]
  - Abdominal pain [Recovered/Resolved]
  - Condition aggravated [Recovered/Resolved]
